FAERS Safety Report 18055829 (Version 2)
Quarter: 2020Q3

REPORT INFORMATION
  Report Type: Spontaneous
  Country: CZ (occurrence: CZ)
  Receive Date: 20200722
  Receipt Date: 20200806
  Transmission Date: 20201103
  Serious: Yes (Hospitalization, Other)
  Sender: FDA-Public Use
  Company Number: NVSC2020CZ205604

PATIENT
  Age: 62 Year
  Sex: Male
  Weight: 130 kg

DRUGS (18)
  1. METFORMIN [Suspect]
     Active Substance: METFORMIN HYDROCHLORIDE
     Indication: DIABETIC METABOLIC DECOMPENSATION
  2. HUMULIN N [Concomitant]
     Active Substance: INSULIN HUMAN
     Indication: DIABETIC METABOLIC DECOMPENSATION
     Dosage: 20 U
     Route: 065
     Dates: end: 2016
  3. LISPRO INSULIN [Concomitant]
     Active Substance: INSULIN LISPRO
     Indication: TYPE 2 DIABETES MELLITUS
     Dosage: 100 UNK, U/ML, 26?28?22U
     Route: 058
  4. LISPRO INSULIN [Concomitant]
     Active Substance: INSULIN LISPRO
     Dosage: RE INTRODUCED WITH THE DOSE OF 100 U/ML
     Route: 065
     Dates: end: 201907
  5. INSULIN [Concomitant]
     Active Substance: INSULIN NOS
     Indication: DIABETIC METABOLIC DECOMPENSATION
     Dosage: UNK, 26?22/24?16/18 U
     Route: 058
  6. LISPRO INSULIN [Concomitant]
     Active Substance: INSULIN LISPRO
     Dosage: MODIFIED TO 30?32?30 U,
     Route: 065
  7. LISPRO INSULIN [Concomitant]
     Active Substance: INSULIN LISPRO
     Indication: DIABETIC METABOLIC DECOMPENSATION
     Dosage: UNK, 30?32?18
     Route: 058
  8. LISPRO INSULIN [Concomitant]
     Active Substance: INSULIN LISPRO
     Dosage: UNK, 30?32?30
     Route: 058
  9. LISPRO INSULIN [Concomitant]
     Active Substance: INSULIN LISPRO
     Dosage: 200 U/ML
     Route: 065
     Dates: start: 201907
  10. LISPRO INSULIN [Concomitant]
     Active Substance: INSULIN LISPRO
     Dosage: 100 U/ML
     Route: 065
     Dates: start: 2016
  11. METFORMIN [Suspect]
     Active Substance: METFORMIN HYDROCHLORIDE
     Indication: TYPE 2 DIABETES MELLITUS
     Route: 065
  12. HUMULIN N [Concomitant]
     Active Substance: INSULIN HUMAN
     Indication: DIABETES MELLITUS
     Dosage: 20 UNK, UNITS QN (AT 10 PM)
     Route: 058
  13. METFORMIN [Suspect]
     Active Substance: METFORMIN HYDROCHLORIDE
     Indication: DIABETES MELLITUS
     Dosage: 2000 MG, QD
     Route: 048
     Dates: start: 2016, end: 2018
  14. INSULIN H R [Concomitant]
     Indication: DIABETIC METABOLIC DECOMPENSATION
     Dosage: 38 UNK, UNITS
     Route: 058
  15. INSULIN GLARGINE [Concomitant]
     Active Substance: INSULIN GLARGINE
     Indication: TYPE 2 DIABETES MELLITUS
     Dosage: 38 UNK, QN UNIT (AT 10 PM)
     Route: 058
  16. INSULIN H R [Concomitant]
     Indication: DIABETES MELLITUS
     Dosage: 32 UNK UNITS
     Route: 058
  17. INSULIN GLARGINE [Concomitant]
     Active Substance: INSULIN GLARGINE
     Indication: DIABETIC METABOLIC DECOMPENSATION
     Dosage: 48 UNK, QN UNIT (AT 10 PM)
     Route: 058
  18. INSULIN GLARGINE [Concomitant]
     Active Substance: INSULIN GLARGINE
     Dosage: 52 UNK, QN UNIT (AT 10 PM)
     Route: 058

REACTIONS (16)
  - Arthralgia [Recovering/Resolving]
  - Injection site pain [Recovered/Resolved]
  - Weight increased [Not Recovered/Not Resolved]
  - Arthritis [Not Recovered/Not Resolved]
  - Hypertension [Unknown]
  - Hypoglycaemia [Recovered/Resolved]
  - Peripheral venous disease [Unknown]
  - Impaired healing [Recovered/Resolved]
  - Diabetic metabolic decompensation [Recovered/Resolved]
  - Sensorimotor disorder [Unknown]
  - Peripheral swelling [Recovering/Resolving]
  - Liver disorder [Unknown]
  - Aortic aneurysm [Unknown]
  - Metabolic syndrome [Not Recovered/Not Resolved]
  - Diabetes mellitus [Recovering/Resolving]
  - Dyspnoea [Recovering/Resolving]

NARRATIVE: CASE EVENT DATE: 2016
